FAERS Safety Report 8584547-2 (Version None)
Quarter: 2012Q3

REPORT INFORMATION
  Report Type: 
  Country: None (occurrence: None)
  Receive Date: 20120730
  Receipt Date: 20120720
  Transmission Date: 20120928
  Serious: Yes (Other)
  Sender: FDA-Public Use
  Company Number: 2012AP002186

PATIENT
  Sex: Female

DRUGS (3)
  1. IBANDRONATE SODIUM [Suspect]
     Indication: OSTEOPOROSIS
  2. ALENDRONATE SODIUM [Suspect]
     Indication: OSTEOPOROSIS
  3. ALENDRONATE SODIUM [Suspect]
     Indication: OSTEOPOROSIS

REACTIONS (10)
  - ANXIETY [None]
  - LOW TURNOVER OSTEOPATHY [None]
  - FEMUR FRACTURE [None]
  - EMOTIONAL DISTRESS [None]
  - FEAR OF DISEASE [None]
  - QUALITY OF LIFE DECREASED [None]
  - PAIN [None]
  - MENTAL DISORDER [None]
  - STRESS FRACTURE [None]
  - OSTEOGENESIS IMPERFECTA [None]
